FAERS Safety Report 23750184 (Version 4)
Quarter: 2025Q1

REPORT INFORMATION
  Report Type: Other
  Country: CA (occurrence: CA)
  Receive Date: 20240417
  Receipt Date: 20250220
  Transmission Date: 20250409
  Serious: Yes (Death, Other)
  Sender: CELLTRION
  Company Number: CA-CELLTRION INC.-2024CA008524

PATIENT

DRUGS (68)
  1. TRASTUZUMAB [Suspect]
     Active Substance: TRASTUZUMAB
     Indication: Pancreatic carcinoma metastatic
     Route: 065
  2. TRASTUZUMAB [Suspect]
     Active Substance: TRASTUZUMAB
     Route: 065
  3. TRASTUZUMAB [Suspect]
     Active Substance: TRASTUZUMAB
     Route: 065
  4. TRASTUZUMAB [Suspect]
     Active Substance: TRASTUZUMAB
     Route: 065
  5. TRASTUZUMAB [Suspect]
     Active Substance: TRASTUZUMAB
     Route: 065
  6. TRASTUZUMAB [Suspect]
     Active Substance: TRASTUZUMAB
     Route: 065
  7. BEVACIZUMAB [Suspect]
     Active Substance: BEVACIZUMAB
     Indication: Pancreatic carcinoma metastatic
     Route: 065
  8. TRASTUZUMAB DERUXTECAN [Suspect]
     Active Substance: TRASTUZUMAB DERUXTECAN
     Indication: Pancreatic carcinoma metastatic
     Route: 065
  9. GEMCITABINE [Suspect]
     Active Substance: GEMCITABINE
     Indication: Pancreatic carcinoma metastatic
     Route: 065
  10. GEMCITABINE [Suspect]
     Active Substance: GEMCITABINE
     Indication: Metastases to liver
     Route: 065
  11. GEMCITABINE [Suspect]
     Active Substance: GEMCITABINE
     Route: 065
  12. GEMCITABINE [Suspect]
     Active Substance: GEMCITABINE
     Indication: Pancreatic carcinoma metastatic
     Route: 065
  13. GEMCITABINE [Suspect]
     Active Substance: GEMCITABINE
     Route: 065
  14. LORBRENA [Suspect]
     Active Substance: LORLATINIB
     Indication: Neoplasm
     Route: 065
  15. LORBRENA [Suspect]
     Active Substance: LORLATINIB
     Indication: Pancreatic carcinoma metastatic
     Route: 065
  16. LORBRENA [Suspect]
     Active Substance: LORLATINIB
     Indication: Pulmonary mass
     Route: 065
  17. OXALIPLATIN [Suspect]
     Active Substance: OXALIPLATIN
     Indication: Pancreatic carcinoma metastatic
     Route: 065
  18. OXALIPLATIN [Suspect]
     Active Substance: OXALIPLATIN
     Route: 065
  19. OXALIPLATIN [Suspect]
     Active Substance: OXALIPLATIN
     Route: 065
  20. OXALIPLATIN [Suspect]
     Active Substance: OXALIPLATIN
     Route: 065
  21. PEMBROLIZUMAB [Suspect]
     Active Substance: PEMBROLIZUMAB
     Indication: Pancreatic carcinoma metastatic
     Route: 065
  22. PEMBROLIZUMAB [Suspect]
     Active Substance: PEMBROLIZUMAB
     Indication: Brain cancer metastatic
  23. ALUNBRIG [Suspect]
     Active Substance: BRIGATINIB
     Indication: Targeted cancer therapy
     Route: 065
  24. ALUNBRIG [Suspect]
     Active Substance: BRIGATINIB
     Indication: Pancreatic carcinoma metastatic
  25. ALUNBRIG [Suspect]
     Active Substance: BRIGATINIB
     Indication: Disease progression
  26. AMILOMER [Suspect]
     Active Substance: AMILOMER
     Indication: Pancreatic carcinoma metastatic
     Route: 065
  27. DOCETAXEL [Suspect]
     Active Substance: DOCETAXEL
     Indication: Pancreatic carcinoma metastatic
     Route: 065
  28. DOCETAXEL [Suspect]
     Active Substance: DOCETAXEL
     Indication: Pancreatic carcinoma metastatic
     Route: 065
  29. ENTRECTINIB [Suspect]
     Active Substance: ENTRECTINIB
     Indication: Pancreatic carcinoma metastatic
     Route: 065
  30. ENHERTU [Suspect]
     Active Substance: FAM-TRASTUZUMAB DERUXTECAN-NXKI
     Indication: Pancreatic carcinoma metastatic
     Route: 042
  31. KEYTRUDA [Suspect]
     Active Substance: PEMBROLIZUMAB
     Indication: Pancreatic carcinoma metastatic
     Route: 065
  32. KEYTRUDA [Suspect]
     Active Substance: PEMBROLIZUMAB
     Indication: Brain cancer metastatic
  33. CISPLATIN [Suspect]
     Active Substance: CISPLATIN
     Indication: Pancreatic carcinoma metastatic
     Route: 065
  34. CISPLATIN [Suspect]
     Active Substance: CISPLATIN
     Route: 042
  35. PERTUZUMAB [Suspect]
     Active Substance: PERTUZUMAB
     Indication: Pancreatic carcinoma metastatic
     Route: 065
  36. PERTUZUMAB [Suspect]
     Active Substance: PERTUZUMAB
     Route: 065
  37. DEMCIZUMAB [Suspect]
     Active Substance: DEMCIZUMAB
     Indication: Pancreatic carcinoma metastatic
     Route: 065
  38. DEMCIZUMAB [Suspect]
     Active Substance: DEMCIZUMAB
     Indication: Metastases to liver
  39. ETHIODIZED OIL [Suspect]
     Active Substance: ETHIODIZED OIL
     Indication: Pancreatic carcinoma metastatic
     Route: 065
  40. FLUOROURACIL [Suspect]
     Active Substance: FLUOROURACIL
     Indication: Pancreatic carcinoma metastatic
     Route: 065
  41. PEMETREXED [Suspect]
     Active Substance: PEMETREXED
     Indication: Pancreatic carcinoma metastatic
  42. PEMETREXED [Suspect]
     Active Substance: PEMETREXED
     Indication: Pancreatic carcinoma metastatic
     Route: 042
  43. OSIMERTINIB [Suspect]
     Active Substance: OSIMERTINIB
     Indication: Pancreatic carcinoma metastatic
     Route: 065
  44. PACLITAXEL [Suspect]
     Active Substance: PACLITAXEL
     Indication: Pancreatic carcinoma metastatic
     Route: 065
  45. PACLITAXEL [Suspect]
     Active Substance: PACLITAXEL
     Indication: Metastases to liver
  46. PACLITAXEL [Suspect]
     Active Substance: PACLITAXEL
     Indication: Pancreatic carcinoma metastatic
     Route: 065
  47. PACLITAXEL [Suspect]
     Active Substance: PACLITAXEL
     Route: 042
  48. MITOMYCIN [Suspect]
     Active Substance: MITOMYCIN
     Indication: Pancreatic carcinoma metastatic
     Route: 065
  49. MITOMYCIN [Suspect]
     Active Substance: MITOMYCIN
     Route: 042
  50. CAPECITABINE [Suspect]
     Active Substance: CAPECITABINE
     Indication: Pancreatic carcinoma metastatic
     Route: 065
  51. YTTRIUM CHLORIDE Y-90 [Suspect]
     Active Substance: YTTRIUM CHLORIDE Y-90
     Indication: Radiotherapy
     Route: 065
  52. CAPECITABINE [Suspect]
     Active Substance: CAPECITABINE
     Indication: Pancreatic carcinoma metastatic
     Route: 065
  53. CAPECITABINE [Suspect]
     Active Substance: CAPECITABINE
     Indication: Brain cancer metastatic
  54. CAPECITABINE [Suspect]
     Active Substance: CAPECITABINE
     Indication: Pancreatic carcinoma metastatic
  55. CAPECITABINE [Suspect]
     Active Substance: CAPECITABINE
     Indication: Brain cancer metastatic
  56. CAPECITABINE [Suspect]
     Active Substance: CAPECITABINE
  57. CAPECITABINE [Suspect]
     Active Substance: CAPECITABINE
  58. PEMETREXED [Concomitant]
     Active Substance: PEMETREXED
     Route: 065
  59. ETHIODIZED OIL [Concomitant]
     Active Substance: ETHIODIZED OIL
     Indication: Pancreatic carcinoma metastatic
     Route: 065
  60. FLUOROURACIL [Concomitant]
     Active Substance: FLUOROURACIL
     Route: 065
  61. IRINOTECAN [Concomitant]
     Active Substance: IRINOTECAN
     Route: 065
  62. IRINOTECAN [Concomitant]
     Active Substance: IRINOTECAN
     Route: 042
  63. PERTUZUMAB [Concomitant]
     Active Substance: PERTUZUMAB
     Route: 065
  64. MITOMYCIN [Concomitant]
     Active Substance: MITOMYCIN
     Route: 065
  65. CISPLATIN [Concomitant]
     Active Substance: CISPLATIN
     Indication: Pancreatic carcinoma metastatic
  66. CAPECITABINE [Concomitant]
     Active Substance: CAPECITABINE
     Route: 065
  67. AMILOMER [Concomitant]
     Active Substance: AMILOMER
     Indication: Product used for unknown indication
     Route: 065
  68. LEUCOVORIN [Concomitant]
     Active Substance: LEUCOVORIN\LEUCOVORIN CALCIUM
     Indication: Product used for unknown indication
     Route: 065

REACTIONS (12)
  - Gene mutation [Fatal]
  - Pancytopenia [Fatal]
  - Pancreatic carcinoma metastatic [Fatal]
  - Drug-induced liver injury [Fatal]
  - Pleural effusion [Fatal]
  - Drug ineffective for unapproved indication [Fatal]
  - Off label use [Fatal]
  - Metastases to central nervous system [Unknown]
  - Metastases to liver [Unknown]
  - Disease progression [Unknown]
  - Drug ineffective [Unknown]
  - Intentional product use issue [Unknown]
